FAERS Safety Report 15849316 (Version 4)
Quarter: 2019Q2

REPORT INFORMATION
  Report Type: Spontaneous
  Country: US (occurrence: US)
  Receive Date: 20190121
  Receipt Date: 20190513
  Transmission Date: 20190711
  Serious: Yes (Death, Hospitalization)
  Sender: FDA-Public Use
  Company Number: US-JNJFOC-20190120841

PATIENT
  Sex: Female

DRUGS (21)
  1. XARELTO [Suspect]
     Active Substance: RIVAROXABAN
     Indication: ATRIAL FIBRILLATION
     Route: 048
     Dates: start: 20161221
  2. LACTULOSE. [Concomitant]
     Active Substance: LACTULOSE
     Route: 065
  3. XARELTO [Suspect]
     Active Substance: RIVAROXABAN
     Indication: ATRIAL FIBRILLATION
     Route: 048
     Dates: start: 201212, end: 2016
  4. XARELTO [Suspect]
     Active Substance: RIVAROXABAN
     Indication: ATRIAL FIBRILLATION
     Route: 048
  5. XARELTO [Suspect]
     Active Substance: RIVAROXABAN
     Indication: CEREBROVASCULAR ACCIDENT PROPHYLAXIS
     Route: 048
  6. GABAPENTIN. [Concomitant]
     Active Substance: GABAPENTIN
     Route: 065
  7. XARELTO [Suspect]
     Active Substance: RIVAROXABAN
     Indication: ATRIAL FIBRILLATION
     Route: 048
     Dates: start: 2016, end: 201612
  8. ATIVAN [Concomitant]
     Active Substance: LORAZEPAM
     Dosage: BEDTIME
     Route: 065
  9. OXYCODONE [Concomitant]
     Active Substance: OXYCODONE
     Route: 065
  10. COENZYME Q10 [Concomitant]
     Active Substance: UBIDECARENONE
     Route: 065
  11. KEPPRA [Concomitant]
     Active Substance: LEVETIRACETAM
     Route: 065
  12. XARELTO [Suspect]
     Active Substance: RIVAROXABAN
     Indication: CEREBROVASCULAR ACCIDENT PROPHYLAXIS
     Route: 048
     Dates: start: 20161221
  13. COREG CR [Concomitant]
     Active Substance: CARVEDILOL PHOSPHATE
     Indication: CARDIOMYOPATHY
     Route: 065
  14. OXYCODONE [Concomitant]
     Active Substance: OXYCODONE
     Route: 065
  15. MELATONIN [Concomitant]
     Active Substance: MELATONIN
     Route: 065
  16. AMIODARONE [Concomitant]
     Active Substance: AMIODARONE
     Route: 065
  17. XARELTO [Suspect]
     Active Substance: RIVAROXABAN
     Indication: CEREBROVASCULAR ACCIDENT PROPHYLAXIS
     Route: 048
     Dates: start: 201212, end: 2016
  18. OXYCODONE [Concomitant]
     Active Substance: OXYCODONE
     Route: 065
  19. ZOFRAN [Concomitant]
     Active Substance: ONDANSETRON HYDROCHLORIDE
     Route: 065
  20. VIMPAT [Concomitant]
     Active Substance: LACOSAMIDE
     Route: 065
  21. XARELTO [Suspect]
     Active Substance: RIVAROXABAN
     Indication: CEREBROVASCULAR ACCIDENT PROPHYLAXIS
     Route: 048
     Dates: start: 2016, end: 201612

REACTIONS (6)
  - Endocarditis [Recovered/Resolved]
  - Sepsis [Fatal]
  - Intracardiac thrombus [Fatal]
  - Drug abuser [Fatal]
  - Therapy cessation [Unknown]
  - Product dose omission [Unknown]

NARRATIVE: CASE EVENT DATE: 2016
